FAERS Safety Report 20630450 (Version 1)
Quarter: 2022Q1

REPORT INFORMATION
  Report Type: Spontaneous
  Country: AU (occurrence: AU)
  Receive Date: 20220324
  Receipt Date: 20220324
  Transmission Date: 20220423
  Serious: Yes (Other)
  Sender: FDA-Public Use
  Company Number: AU-ALKEM LABORATORIES LIMITED-AU-ALKEM-2022-02162

PATIENT
  Age: 47 Year
  Sex: Female

DRUGS (1)
  1. DULOXETINE HYDROCHLORIDE [Suspect]
     Active Substance: DULOXETINE HYDROCHLORIDE
     Indication: Product used for unknown indication
     Dosage: UNK
     Route: 065

REACTIONS (20)
  - Mental impairment [Unknown]
  - Anxiety [Unknown]
  - Blood pressure increased [Unknown]
  - Body temperature decreased [Unknown]
  - Chest pain [Unknown]
  - Depression [Unknown]
  - Disturbance in attention [Unknown]
  - Dizziness [Unknown]
  - Drug withdrawal syndrome [Unknown]
  - Feeling abnormal [Unknown]
  - Hot flush [Unknown]
  - Insomnia [Unknown]
  - Muscle twitching [Unknown]
  - Nausea [Unknown]
  - Paranoia [Unknown]
  - Somnolence [Unknown]
  - Tachycardia [Unknown]
  - Tension headache [Unknown]
  - Tinnitus [Unknown]
  - Visual impairment [Unknown]
